FAERS Safety Report 9586607 (Version 1)
Quarter: 2013Q4

REPORT INFORMATION
  Report Type: Spontaneous
  Country: JP (occurrence: None)
  Receive Date: 20131001
  Receipt Date: 20131001
  Transmission Date: 20140711
  Serious: No
  Sender: FDA-Public Use
  Company Number: SYM-2013-10997

PATIENT
  Sex: 0

DRUGS (4)
  1. FLUOROURACIL (FLUOROURACIL) (FLUOROURACIL) [Suspect]
     Indication: GASTROINTESTINAL CARCINOMA
  2. OXALIPLATIN (OXALIPLATIN) (OXALIPLATIN) [Suspect]
     Indication: GASTROINTESTINAL CARCINOMA
  3. LEUCOVORIN (FOLINIC ACID) (FOLINIC ACID) [Suspect]
     Indication: GASTROINTESTINAL CARCINOMA
  4. CETUXIMAB (CETUXIMAB) (CETUXIMAB) [Suspect]
     Indication: GASTROINTESTINAL CARCINOMA

REACTIONS (1)
  - Stomatitis [None]
